APPROVED DRUG PRODUCT: BALSALAZIDE DISODIUM
Active Ingredient: BALSALAZIDE DISODIUM
Strength: 750MG
Dosage Form/Route: CAPSULE;ORAL
Application: A219422 | Product #001 | TE Code: AB
Applicant: PHARMOBEDIENT CONSULTING LLC
Approved: Apr 3, 2025 | RLD: No | RS: No | Type: RX